FAERS Safety Report 5166512-0 (Version None)
Quarter: 2006Q4

REPORT INFORMATION
  Report Type: 
  Country: None (occurrence: None)
  Receive Date: 20061207
  Receipt Date: 20001218
  Transmission Date: 20070319
  Serious: Yes (Hospitalization, Congenital Anomaly)
  Sender: FDA-Public Use
  Company Number: 10649630

PATIENT
  Age: 24 Hour
  Sex: Male
  Weight: 3 kg

DRUGS (7)
  1. VIDEX [Suspect]
     Dosage: EXPOSURE BEGAIN IN 34TH WEEK OF GESTATION
     Route: 064
     Dates: end: 19990402
  2. RETROVIR [Suspect]
     Dosage: EXPOSURE FROM 32 WEEK OF GESTATION
     Route: 064
     Dates: end: 19990402
  3. VIRAMUNE [Suspect]
     Dosage: EXPOSURE DURING GESTATION.
     Route: 064
     Dates: start: 19990402, end: 19990402
  4. RETROVIR [Suspect]
     Dosage: SYRUP
     Route: 048
  5. IRON SUPPLEMENT [Concomitant]
  6. ERCEFURYL [Concomitant]
     Dosage: DURING WEEK 23 OF GESTATION
     Route: 064
  7. SALBUTAMOL [Concomitant]
     Dosage: FROM WEEK 32 OF GESTATION
     Route: 064

REACTIONS (9)
  - ABNORMAL BEHAVIOUR [None]
  - ANAEMIA [None]
  - BLOOD LACTIC ACID INCREASED [None]
  - HYPERTRIGLYCERIDAEMIA [None]
  - NEUTROPENIA [None]
  - PREGNANCY [None]
  - PSYCHOMOTOR RETARDATION [None]
  - SKULL MALFORMATION [None]
  - SPEECH DISORDER DEVELOPMENTAL [None]
